FAERS Safety Report 9058736 (Version 1)
Quarter: 2013Q1

REPORT INFORMATION
  Report Type: Report from Study
  Country: BR (occurrence: BR)
  Receive Date: 20130204
  Receipt Date: 20130204
  Transmission Date: 20140127
  Serious: Yes (Other)
  Sender: FDA-Public Use
  Company Number: BR-BAYER-2013-011213

PATIENT
  Age: 42 Year
  Sex: Male

DRUGS (2)
  1. BETAFERON [Suspect]
     Indication: MULTIPLE SCLEROSIS
     Dosage: 1 ML, QOD
     Route: 058
     Dates: start: 201211
  2. CORTICOSTEROIDS [Concomitant]
     Indication: MULTIPLE SCLEROSIS
     Dosage: UNK
     Route: 042
     Dates: start: 20130121

REACTIONS (5)
  - Amnesia [Not Recovered/Not Resolved]
  - Chills [Recovered/Resolved]
  - Insomnia [Not Recovered/Not Resolved]
  - Mood altered [Recovering/Resolving]
  - Aggression [Recovering/Resolving]
